FAERS Safety Report 9182693 (Version 1)
Quarter: 2012Q4

REPORT INFORMATION
  Report Type: 
  Country: US (occurrence: US)
  Receive Date: 20121031
  Receipt Date: 20121031
  Transmission Date: 20130627
  Serious: No
  Sender: FDA-Public Use
  Company Number: US-VERTEX PHARMACEUTICAL INC.-2012-023752

PATIENT
  Sex: Female
  Weight: 65.76 kg

DRUGS (9)
  1. VX-950 [Suspect]
     Indication: HEPATITIS C
     Dosage: 750 mg, tid
     Route: 048
  2. RIBAVIRIN [Concomitant]
     Indication: HEPATITIS C
     Dosage: 200 mg, UNK
  3. PEGASYS [Concomitant]
     Indication: HEPATITIS C
  4. HYDROCORT                          /00028602/ [Concomitant]
     Dosage: 10 mg, UNK
  5. ZEBETA [Concomitant]
     Dosage: 10 mg, UNK
  6. MULTIVITAMIN                       /00097801/ [Concomitant]
  7. CALCIUM [Concomitant]
  8. VITAMIN D3 [Concomitant]
     Dosage: 2000 ut, UNK
  9. VITAMIN C                          /00008001/ [Concomitant]
     Dosage: 1000 mg, UNK

REACTIONS (4)
  - Blood count abnormal [Unknown]
  - Muscle spasms [Unknown]
  - Rash [Unknown]
  - Nausea [Unknown]
